FAERS Safety Report 10564667 (Version 4)
Quarter: 2016Q3

REPORT INFORMATION
  Report Type: Spontaneous
  Country: US (occurrence: US)
  Receive Date: 20141104
  Receipt Date: 20160901
  Transmission Date: 20161109
  Serious: Yes (Hospitalization, Disabling, Other)
  Sender: FDA-Public Use
  Company Number: US-009507513-1411USA000567

PATIENT
  Sex: Female
  Weight: 56.24 kg

DRUGS (1)
  1. FOSAMAX [Suspect]
     Active Substance: ALENDRONATE SODIUM
     Indication: OSTEOPOROSIS
     Dosage: 70 MG, QW
     Route: 048
     Dates: start: 20010315, end: 20080710

REACTIONS (16)
  - Musculoskeletal pain [Unknown]
  - Kyphosis [Unknown]
  - Bundle branch block left [Unknown]
  - Emotional distress [Not Recovered/Not Resolved]
  - Hypoacusis [Unknown]
  - Iron deficiency anaemia [Unknown]
  - Hysterosalpingo-oophorectomy [Unknown]
  - Scoliosis [Unknown]
  - Radicular pain [Unknown]
  - Wrist fracture [Unknown]
  - Back pain [Unknown]
  - Ankle fracture [Unknown]
  - Essential hypertension [Unknown]
  - Femur fracture [Recovered/Resolved]
  - Haemorrhagic anaemia [Unknown]
  - Osteoarthritis [Unknown]

NARRATIVE: CASE EVENT DATE: 201101
